FAERS Safety Report 11602743 (Version 1)
Quarter: 2015Q4

REPORT INFORMATION
  Report Type: Spontaneous
  Country: US (occurrence: US)
  Receive Date: 20151006
  Receipt Date: 20151006
  Transmission Date: 20160304
  Serious: No
  Sender: FDA-Public Use
  Company Number: US-AMGEN-USASP2015074197

PATIENT
  Age: 69 Year
  Sex: Female

DRUGS (1)
  1. PROLIA [Suspect]
     Active Substance: DENOSUMAB
     Indication: PRODUCT USED FOR UNKNOWN INDICATION
     Dosage: UNK
     Route: 065

REACTIONS (9)
  - Pain in extremity [Unknown]
  - Myalgia [Unknown]
  - Arthropathy [Unknown]
  - Osteoporosis [Unknown]
  - Headache [Unknown]
  - Dizziness [Unknown]
  - Adverse drug reaction [Unknown]
  - Neck pain [Unknown]
  - Arthralgia [Unknown]
